FAERS Safety Report 5902881-9 (Version None)
Quarter: 2008Q3

REPORT INFORMATION
  Report Type: 
  Country: None (occurrence: None)
  Receive Date: 20080929
  Receipt Date: 20080929
  Transmission Date: 20090109
  Serious: Yes (Life-Threatening)
  Sender: FDA-Public Use
  Company Number: None

PATIENT
  Age: 26 Year
  Sex: Female
  Weight: 52.1637 kg

DRUGS (1)
  1. DEPAKOTE [Suspect]
     Indication: EPILEPSY
     Dosage: 250 TWICE A DAY PO
     Route: 048
     Dates: start: 20040420, end: 20080720

REACTIONS (3)
  - MALAISE [None]
  - MEMORY IMPAIRMENT [None]
  - WHITE BLOOD CELL DISORDER [None]
